FAERS Safety Report 4366205-3 (Version None)
Quarter: 2004Q2

REPORT INFORMATION
  Report Type: 
  Country: None (occurrence: None)
  Receive Date: 20040527
  Receipt Date: 20040219
  Transmission Date: 20050107
  Serious: No
  Sender: FDA-Public Use
  Company Number: US-BRISTOL-MYERS SQUIBB COMPANY-12512653

PATIENT
  Age: 51 Year
  Sex: Female
  Weight: 118 kg

DRUGS (2)
  1. DEFINITY [Suspect]
     Indication: CARDIAC STRESS TEST
     Route: 040
  2. AVANDIA [Suspect]

REACTIONS (2)
  - PRURITUS [None]
  - RASH [None]
